FAERS Safety Report 16803554 (Version 1)
Quarter: 2019Q3

REPORT INFORMATION
  Report Type: Spontaneous
  Country: CN (occurrence: CN)
  Receive Date: 20190913
  Receipt Date: 20190913
  Transmission Date: 20191005
  Serious: Yes (Other)
  Sender: FDA-Public Use
  Company Number: CN-TEVA-2019-CN-1108288

PATIENT
  Age: 20 Year
  Sex: Female

DRUGS (3)
  1. TRASTAL [Concomitant]
  2. MEDOPAR [Concomitant]
  3. AZILECT [Suspect]
     Active Substance: RASAGILINE MESYLATE
     Indication: PARKINSON^S DISEASE
     Dosage: 1 MILLIGRAM DAILY;
     Route: 048
     Dates: start: 20190820, end: 20190828

REACTIONS (2)
  - Parkinson^s disease [Recovering/Resolving]
  - Asthenia [Unknown]

NARRATIVE: CASE EVENT DATE: 20190820
